FAERS Safety Report 4705554-3 (Version None)
Quarter: 2005Q2

REPORT INFORMATION
  Report Type: 
  Country: None (occurrence: None)
  Receive Date: 20050629
  Receipt Date: 20050206
  Transmission Date: 20051028
  Serious: Yes (Death, Other)
  Sender: FDA-Public Use
  Company Number: 200511111GDDC

PATIENT
  Age: 54 Year
  Sex: Male
  Weight: 80 kg

DRUGS (13)
  1. HEPARIN [Suspect]
     Indication: MYOCARDIAL INFARCTION
     Dosage: ONCE IVB
     Route: 040
     Dates: start: 20050116, end: 20050116
  2. HEPARIN [Suspect]
     Indication: MYOCARDIAL INFARCTION
     Dosage: ONCE IVB
     Route: 040
     Dates: start: 20050116, end: 20050116
  3. HEPARIN [Suspect]
     Indication: MYOCARDIAL INFARCTION
     Dosage: ONCE SC
     Route: 058
     Dates: start: 20050116, end: 20050116
  4. HEPARIN SODIUM [Suspect]
     Indication: MYOCARDIAL INFARCTION
     Dosage: CONT IVF
     Route: 042
     Dates: start: 20050116, end: 20050117
  5. TPA SOLUTION FOR INFUSION [Suspect]
     Indication: MYOCARDIAL INFARCTION
     Dosage: 100 MG/DAY IV
     Route: 042
     Dates: start: 20050116, end: 20050116
  6. ASPIRIN [Suspect]
     Indication: MYOCARDIAL INFARCTION
     Dosage: 100 MG/DAY PO
     Route: 048
     Dates: end: 20050116
  7. CAPOTEN [Concomitant]
  8. LOPRESSOR [Concomitant]
  9. TRITACE [Concomitant]
  10. FUSID [Concomitant]
  11. ZANTAC [Concomitant]
  12. GASTRO [Concomitant]
  13. HYDROCORT [Concomitant]

REACTIONS (5)
  - BLOOD CREATINE PHOSPHOKINASE INCREASED [None]
  - BLOOD PRESSURE DECREASED [None]
  - CARDIAC ARREST [None]
  - CEREBRAL HAEMORRHAGE [None]
  - RESPIRATORY FAILURE [None]
